FAERS Safety Report 14348315 (Version 4)
Quarter: 2018Q2

REPORT INFORMATION
  Report Type: Spontaneous
  Country: US (occurrence: US)
  Receive Date: 20180103
  Receipt Date: 20180514
  Transmission Date: 20180711
  Serious: Yes (Death, Hospitalization)
  Sender: FDA-Public Use
  Company Number: US-ACTELION-A-NJ2018-165170

PATIENT
  Age: 80 Year
  Sex: Female
  Weight: 73.92 kg

DRUGS (4)
  1. XARELTO [Concomitant]
     Active Substance: RIVAROXABAN
  2. ADEMPAS [Concomitant]
     Active Substance: RIOCIGUAT
  3. AMLODIPINE [Concomitant]
     Active Substance: AMLODIPINE BESYLATE
  4. OPSUMIT [Suspect]
     Active Substance: MACITENTAN
     Indication: PULMONARY HYPERTENSION
     Dosage: 10 MG, QD
     Route: 048

REACTIONS (8)
  - Fracture [Unknown]
  - Blood urine present [Unknown]
  - Hip arthroplasty [Unknown]
  - Death [Fatal]
  - Fall [Unknown]
  - Urinary bladder haemorrhage [Unknown]
  - Dyspnoea [Unknown]
  - Femur fracture [Unknown]

NARRATIVE: CASE EVENT DATE: 20180106
